FAERS Safety Report 16778049 (Version 2)
Quarter: 2019Q4

REPORT INFORMATION
  Report Type: Report from Study
  Country: JP (occurrence: JP)
  Receive Date: 20190905
  Receipt Date: 20191115
  Transmission Date: 20200122
  Serious: Yes (Hospitalization)
  Sender: FDA-Public Use
  Company Number: JP-BIOCODEX SA-201901091

PATIENT

DRUGS (26)
  1. SODIUM VALPROATE [Suspect]
     Active Substance: VALPROATE SODIUM
     Dosage: 400 MG, QD
     Route: 048
     Dates: start: 20130829, end: 20130911
  2. CLOBAZAM. [Concomitant]
     Active Substance: CLOBAZAM
     Indication: SEVERE MYOCLONIC EPILEPSY OF INFANCY
     Dosage: 6 MG, QD
     Route: 048
     Dates: end: 20141207
  3. CLOBAZAM. [Concomitant]
     Active Substance: CLOBAZAM
     Dosage: 15 MG, QD
     Route: 048
     Dates: start: 20150916, end: 20151110
  4. LEVETIRACETAM. [Concomitant]
     Active Substance: LEVETIRACETAM
     Dosage: 1000 MG, QD
     Route: 048
     Dates: start: 20131205, end: 20140305
  5. LEVOCARNITINE. [Concomitant]
     Active Substance: LEVOCARNITINE
     Indication: HYPERAMMONAEMIA
     Dosage: 1800 MG, QD
     Route: 048
     Dates: start: 20131218, end: 20140107
  6. CLOBAZAM. [Concomitant]
     Active Substance: CLOBAZAM
     Dosage: 13 MG, QD
     Route: 048
     Dates: start: 20150812, end: 20150915
  7. LEVOCARNITINE. [Concomitant]
     Active Substance: LEVOCARNITINE
     Dosage: 2400 MG, QD
     Route: 048
     Dates: start: 20140108, end: 20150512
  8. SODIUM VALPROATE [Suspect]
     Active Substance: VALPROATE SODIUM
     Dosage: 500 MG, QD
     Route: 048
     Dates: start: 20150812
  9. CLOBAZAM. [Concomitant]
     Active Substance: CLOBAZAM
     Dosage: 10 MG, QD
     Route: 048
     Dates: start: 20141208, end: 20150407
  10. DIACOMIT [Suspect]
     Active Substance: STIRIPENTOL
     Dosage: 2000 MG, QD
     Route: 048
     Dates: start: 20130828
  11. SODIUM VALPROATE [Suspect]
     Active Substance: VALPROATE SODIUM
     Dosage: 650 MG, QD
     Route: 048
     Dates: end: 20121205
  12. DIACOMIT [Suspect]
     Active Substance: STIRIPENTOL
     Indication: SEVERE MYOCLONIC EPILEPSY OF INFANCY
     Dosage: 1750 MG, QD
     Route: 048
     Dates: start: 20130130, end: 20130827
  13. SODIUM VALPROATE [Suspect]
     Active Substance: VALPROATE SODIUM
     Dosage: 625 MG, QD
     Route: 048
     Dates: start: 20121206, end: 20130828
  14. SODIUM VALPROATE [Suspect]
     Active Substance: VALPROATE SODIUM
     Dosage: 320 MG, QD
     Route: 048
     Dates: start: 20130912, end: 20131218
  15. CLOBAZAM. [Concomitant]
     Active Substance: CLOBAZAM
     Dosage: 12 MG, QD
     Route: 048
     Dates: start: 20150408, end: 20150811
  16. CLOBAZAM. [Concomitant]
     Active Substance: CLOBAZAM
     Dosage: 17 MG, QD
     Route: 048
     Dates: start: 20151111, end: 20160105
  17. LEVOCARNITINE. [Concomitant]
     Active Substance: LEVOCARNITINE
     Dosage: 3000 MG, QD
     Route: 048
     Dates: start: 20150513, end: 20150526
  18. SODIUM VALPROATE [Suspect]
     Active Substance: VALPROATE SODIUM
     Indication: SEVERE MYOCLONIC EPILEPSY OF INFANCY
     Dosage: 630 MG, QD
     Route: 048
  19. SODIUM VALPROATE [Suspect]
     Active Substance: VALPROATE SODIUM
     Dosage: 480 MG, QD
     Route: 048
     Dates: start: 20131219, end: 20140108
  20. SODIUM VALPROATE [Suspect]
     Active Substance: VALPROATE SODIUM
     Dosage: 600 MG, QD
     Route: 048
     Dates: start: 20140109, end: 20150811
  21. CLOBAZAM. [Concomitant]
     Active Substance: CLOBAZAM
     Dosage: 19 MG, QD
     Route: 048
     Dates: start: 20160106
  22. LEVETIRACETAM. [Concomitant]
     Active Substance: LEVETIRACETAM
     Indication: EPILEPSY
     Dosage: 500 MG, QD
     Route: 048
     Dates: start: 20131009, end: 20131204
  23. LEVETIRACETAM. [Concomitant]
     Active Substance: LEVETIRACETAM
     Dosage: 1500 MG, QD
     Route: 048
     Dates: start: 20140306
  24. LEVOCARNITINE. [Concomitant]
     Active Substance: LEVOCARNITINE
     Dosage: UNK
     Route: 051
     Dates: start: 20150513, end: 20150514
  25. LEVOCARNITINE. [Concomitant]
     Active Substance: LEVOCARNITINE
     Dosage: 3600 MG, QD
     Route: 048
     Dates: start: 20150527, end: 20150610
  26. LEVOCARNITINE. [Concomitant]
     Active Substance: LEVOCARNITINE
     Dosage: 3000 MG, QD
     Route: 048
     Dates: start: 20150611

REACTIONS (2)
  - Hyperventilation [Recovered/Resolved]
  - Hypoaesthesia [Unknown]

NARRATIVE: CASE EVENT DATE: 20151217
